FAERS Safety Report 11929439 (Version 1)
Quarter: 2016Q1

REPORT INFORMATION
  Report Type: Report from Study
  Country: US (occurrence: US)
  Receive Date: 20160120
  Receipt Date: 20160120
  Transmission Date: 20160526
  Serious: Yes (Other)
  Sender: FDA-Public Use
  Company Number: US-AMGEN-USASP2016004544

PATIENT
  Age: 51 Year
  Sex: Female

DRUGS (3)
  1. ENBREL [Suspect]
     Active Substance: ETANERCEPT
     Indication: RHEUMATOID ARTHRITIS
     Dosage: 50 MG, QWK
     Route: 065
     Dates: start: 2011, end: 2012
  2. COUMADIN [Concomitant]
     Active Substance: WARFARIN SODIUM
     Indication: FACTOR V DEFICIENCY
  3. COUMADIN [Concomitant]
     Active Substance: WARFARIN SODIUM
     Indication: FACTOR III DEFICIENCY
     Dosage: UNK

REACTIONS (7)
  - Contusion [Unknown]
  - Multiple organ dysfunction syndrome [Unknown]
  - Acute kidney injury [Unknown]
  - Immunodeficiency common variable [Unknown]
  - Abnormal behaviour [Unknown]
  - Injection site bruising [Unknown]
  - Systemic lupus erythematosus [Unknown]
